FAERS Safety Report 9141743 (Version 1)
Quarter: 2013Q1

REPORT INFORMATION
  Report Type: Spontaneous
  Country: FR (occurrence: FR)
  Receive Date: 20130305
  Receipt Date: 20130305
  Transmission Date: 20140127
  Serious: Yes (Other)
  Sender: FDA-Public Use
  Company Number: FR-009507513-1302FRA012279

PATIENT
  Age: 34 Year
  Sex: Female

DRUGS (3)
  1. ORGALUTRAN [Suspect]
     Indication: ASSISTED FERTILISATION
     Dosage: 0.25 MG, QD
     Route: 048
     Dates: start: 20100325, end: 20100401
  2. OROMONE [Suspect]
     Indication: ASSISTED FERTILISATION
     Dosage: UNK
     Route: 048
     Dates: start: 20100314, end: 20100324
  3. GONAL-F [Suspect]
     Indication: ASSISTED FERTILISATION
     Dosage: UNK
     Route: 058
     Dates: start: 20100325, end: 20100401

REACTIONS (1)
  - Erythema multiforme [Recovered/Resolved]
